FAERS Safety Report 9556737 (Version 1)
Quarter: 2013Q3

REPORT INFORMATION
  Report Type: Spontaneous
  Country: US (occurrence: US)
  Receive Date: 20130926
  Receipt Date: 20130926
  Transmission Date: 20140515
  Serious: No
  Sender: FDA-Public Use
  Company Number: US-PFIZER INC-2013275544

PATIENT
  Age: 62 Year
  Sex: Male
  Weight: 107 kg

DRUGS (3)
  1. LYRICA [Suspect]
     Indication: SPINAL COLUMN STENOSIS
     Dosage: 75 MG, 2X/DAY
     Dates: start: 2013
  2. METOPROLOL [Concomitant]
     Indication: HYPERTENSION
     Dosage: 100 MG, 2X/DAY
  3. AMLODIPINE/BENAZEPRIL [Concomitant]
     Dosage: AMLODIPINE 10 MG/BENAZEPRIL 40 MG), 1X/DAY

REACTIONS (2)
  - Off label use [Unknown]
  - Joint swelling [Recovered/Resolved]
